FAERS Safety Report 10196832 (Version 3)
Quarter: 2014Q2

REPORT INFORMATION
  Report Type: Spontaneous
  Country: US (occurrence: US)
  Receive Date: 20140527
  Receipt Date: 20140625
  Transmission Date: 20141212
  Serious: Yes (Other)
  Sender: FDA-Public Use
  Company Number: US-RB-066129-14

PATIENT
  Age: 58 Year
  Sex: Female

DRUGS (2)
  1. MUCINEX DM [Suspect]
     Indication: COUGH
     Dosage: TOOK 1 PILL ON 11-MAR-2014
     Route: 048
     Dates: start: 20140311
  2. MUCINEX DM [Suspect]
     Indication: RESPIRATORY TRACT CONGESTION
     Dosage: TOOK 1 PILL ON 11-MAR-2014
     Route: 048
     Dates: start: 20140311

REACTIONS (13)
  - Loss of consciousness [Unknown]
  - Presyncope [Unknown]
  - Dyspnoea [Unknown]
  - Palpitations [Unknown]
  - Dizziness [Unknown]
  - Fall [Unknown]
  - Facial bones fracture [Unknown]
  - Haemorrhage [Unknown]
  - Nasal septum deviation [Not Recovered/Not Resolved]
  - Swelling [Not Recovered/Not Resolved]
  - Dyspnoea [Not Recovered/Not Resolved]
  - Wound [Unknown]
  - Scar [Not Recovered/Not Resolved]
